APPROVED DRUG PRODUCT: ALLEGRA
Active Ingredient: FEXOFENADINE HYDROCHLORIDE
Strength: 30MG/5ML **Federal Register determination that product was not discontinued or withdrawn for safety or effectiveness reasons**
Dosage Form/Route: SUSPENSION;ORAL
Application: N021963 | Product #001
Applicant: CHATTEM INC DBA SANOFI CONSUMER HEALTHCARE
Approved: Oct 16, 2006 | RLD: Yes | RS: No | Type: DISCN